FAERS Safety Report 5078812-3 (Version None)
Quarter: 2006Q3

REPORT INFORMATION
  Report Type: 
  Country: None (occurrence: None)
  Receive Date: 20060809
  Receipt Date: 20060724
  Transmission Date: 20061208
  Serious: No
  Sender: FDA-Public Use
  Company Number: TPA2006A01188

PATIENT
  Age: 61 Year
  Sex: Male
  Weight: 81.6475 kg

DRUGS (4)
  1. ROZEREM [Suspect]
     Indication: INITIAL INSOMNIA
     Dosage: SEE IMAGE
     Route: 048
     Dates: start: 20051101
  2. LIPITOR [Concomitant]
  3. ACETAMINOPHEN [Concomitant]
  4. VALIUM [Concomitant]

REACTIONS (2)
  - DRUG INEFFECTIVE [None]
  - MIDDLE INSOMNIA [None]
